FAERS Safety Report 16679070 (Version 1)
Quarter: 2019Q3

REPORT INFORMATION
  Report Type: Spontaneous
  Country: PL (occurrence: PL)
  Receive Date: 20190807
  Receipt Date: 20190807
  Transmission Date: 20191004
  Serious: Yes (Hospitalization)
  Sender: FDA-Public Use
  Company Number: PL-NOVOPROD-675312

PATIENT
  Age: 72 Year
  Sex: Female

DRUGS (4)
  1. ACTRAPID [Suspect]
     Active Substance: INSULIN HUMAN
     Dosage: 30 IU, QD (INSULIN NPH INJECTION AT 10 PM)
     Route: 058
  2. ACTRAPID [Suspect]
     Active Substance: INSULIN HUMAN
     Indication: TYPE 2 DIABETES MELLITUS
     Dosage: DOSE OF 20 IU INJECTED BEFORE EACH MAIN MEAL
     Route: 058
  3. INSULATARD HM [Concomitant]
     Active Substance: INSULIN HUMAN
     Dosage: C.A. 30 UNITS AT 10 PM
  4. METFORMIN [Concomitant]
     Active Substance: METFORMIN HYDROCHLORIDE
     Indication: DIABETES MELLITUS

REACTIONS (3)
  - Device issue [Unknown]
  - Device failure [Unknown]
  - Diabetic metabolic decompensation [Unknown]
